FAERS Safety Report 12701305 (Version 1)
Quarter: 2016Q3

REPORT INFORMATION
  Report Type: Spontaneous
  Country: US (occurrence: None)
  Receive Date: 20160830
  Receipt Date: 20160830
  Transmission Date: 20161109
  Serious: Yes (Disabling)
  Sender: FDA-Public Use
  Company Number: None

PATIENT
  Age: 64 Year
  Sex: Female
  Weight: 47.63 kg

DRUGS (11)
  1. NARCO [Concomitant]
  2. SERTRALINE [Suspect]
     Active Substance: SERTRALINE HYDROCHLORIDE
     Indication: ANXIETY
     Dosage: ONE DAILY - TOOK MAYBE A WEEK OR LESS
     Dates: start: 20160331
  3. LEVEMIR [Concomitant]
     Active Substance: INSULIN DETEMIR
  4. VENLAFAXINE HYDROCHLORIDE. [Suspect]
     Active Substance: VENLAFAXINE HYDROCHLORIDE
     Indication: ANXIETY
     Route: 048
     Dates: start: 20160719, end: 20160719
  5. LEVOTHYROXIN [Concomitant]
     Active Substance: LEVOTHYROXINE
  6. BUSPIRONE [Suspect]
     Active Substance: BUSPIRONE HYDROCHLORIDE
     Indication: ANXIETY
     Dosage: ONE DAILY TOOK A WEEK OR LESS
     Dates: start: 20150423
  7. CHANTIX [Suspect]
     Active Substance: VARENICLINE TARTRATE
  8. NEXIUM [Concomitant]
     Active Substance: ESOMEPRAZOLE MAGNESIUM
  9. LIPITOR [Concomitant]
     Active Substance: ATORVASTATIN CALCIUM
  10. CHLORHEXIDINE [Concomitant]
     Active Substance: CHLORHEXIDINE
  11. SCOPOLAMINE PATCH [Suspect]
     Active Substance: SCOPOLAMINE
     Dates: start: 20120822

REACTIONS (3)
  - Somnolence [None]
  - Nausea [None]
  - Lethargy [None]

NARRATIVE: CASE EVENT DATE: 20160719
